APPROVED DRUG PRODUCT: CLONIDINE
Active Ingredient: CLONIDINE
Strength: 0.3MG/24HR
Dosage Form/Route: SYSTEM;TRANSDERMAL
Application: A076166 | Product #003 | TE Code: AB
Applicant: MYLAN TECHNOLOGIES INC
Approved: Jul 16, 2010 | RLD: No | RS: No | Type: RX